FAERS Safety Report 9486775 (Version 1)
Quarter: 2013Q3

REPORT INFORMATION
  Report Type: Spontaneous
  Country: SG (occurrence: None)
  Receive Date: 20130823
  Receipt Date: 20130823
  Transmission Date: 20140515
  Serious: Yes (Hospitalization)
  Sender: FDA-Public Use
  Company Number: 2013P1018618

PATIENT
  Age: 59 Year
  Sex: Female

DRUGS (2)
  1. CHLORPROMAZINE [Suspect]
     Indication: SCHIZOPHRENIA
  2. FLUPHENAZINE DECANOATE [Suspect]
     Indication: SCHIZOPHRENIA
     Dosage: 30-35 YEARS     30 MG;Q2-4W;IM
     Route: 030

REACTIONS (15)
  - Treatment noncompliance [None]
  - Schizophrenia [None]
  - Abnormal behaviour [None]
  - Sneezing [None]
  - Screaming [None]
  - Feeling hot [None]
  - Stereotypy [None]
  - Tension [None]
  - Tic [None]
  - Anxiety [None]
  - Agitation [None]
  - Frustration [None]
  - Discomfort [None]
  - Coprolalia [None]
  - Tourette^s disorder [None]
